FAERS Safety Report 4959321-6 (Version None)
Quarter: 2006Q1

REPORT INFORMATION
  Report Type: 
  Country: None (occurrence: None)
  Receive Date: 20060331
  Receipt Date: 20060328
  Transmission Date: 20060701
  Serious: Yes (Other)
  Sender: FDA-Public Use
  Company Number: US-JNJFOC-20051002798

PATIENT
  Sex: Female
  Weight: 68.04 kg

DRUGS (16)
  1. ELMIRON [Suspect]
     Route: 048
  2. ELMIRON [Suspect]
     Indication: CYSTITIS INTERSTITIAL
     Route: 048
  3. PROTONIX [Concomitant]
     Route: 048
  4. ESTRACE [Concomitant]
     Route: 048
  5. TYLENOL (CAPLET) [Concomitant]
  6. CLIDINIUM BROMIDE [Concomitant]
     Route: 048
  7. ATARAX [Concomitant]
     Dosage: DAILY BEDTIME DOSE
     Route: 048
  8. ELAVIL [Concomitant]
     Dosage: DAILY BEDTIME DOSE
     Route: 048
  9. PROSED EC [Concomitant]
     Route: 048
  10. PROSED EC [Concomitant]
     Route: 048
  11. PROSED EC [Concomitant]
     Route: 048
  12. PROSED EC [Concomitant]
     Route: 048
  13. PROSED EC [Concomitant]
     Route: 048
  14. PROSED EC [Concomitant]
     Route: 048
  15. CLIDINIUM [Concomitant]
     Dosage: INTERVAL - AS NEEDED
  16. PRELIEF [Concomitant]

REACTIONS (2)
  - ANOREXIA [None]
  - WEIGHT DECREASED [None]
